FAERS Safety Report 15552373 (Version 19)
Quarter: 2020Q2

REPORT INFORMATION
  Report Type: Report from Study
  Country: CO (occurrence: CO)
  Receive Date: 20181025
  Receipt Date: 20200602
  Transmission Date: 20200713
  Serious: Yes (Hospitalization, Other)
  Sender: FDA-Public Use
  Company Number: CO-SA-2018SA018771

PATIENT

DRUGS (1)
  1. ALEMTUZUMAB [Suspect]
     Active Substance: ALEMTUZUMAB
     Indication: MULTIPLE SCLEROSIS
     Dosage: UNK UNK,QD
     Route: 041
     Dates: start: 20171220, end: 20171222

REACTIONS (28)
  - Urinary tract infection [Recovered/Resolved]
  - Neutrophil count decreased [Recovered/Resolved]
  - Urinary tract infection bacterial [Recovered/Resolved]
  - Haematuria [Recovered/Resolved]
  - Gallbladder neoplasm [Unknown]
  - Crystal urine present [Recovered/Resolved]
  - Blood thyroid stimulating hormone decreased [Not Recovered/Not Resolved]
  - Bacteriuria [Not Recovered/Not Resolved]
  - Helicobacter gastritis [Unknown]
  - Post micturition dribble [Unknown]
  - Haematochezia [Recovered/Resolved]
  - Blood thyroid stimulating hormone increased [Recovered/Resolved]
  - Nitrite urine present [Not Recovered/Not Resolved]
  - Abdominal pain upper [Unknown]
  - Bladder trabeculation [Unknown]
  - Leukocyturia [Not Recovered/Not Resolved]
  - White blood cell count decreased [Not Recovered/Not Resolved]
  - Pain [Unknown]
  - Abdominal pain [Recovered/Resolved]
  - Lymphocyte percentage decreased [Recovered/Resolved]
  - Lymphocyte count decreased [Recovered/Resolved]
  - Abdominal discomfort [Unknown]
  - Bladder hypertrophy [Unknown]
  - Bladder dilatation [Unknown]
  - Cholelithiasis [Unknown]
  - Nausea [Recovered/Resolved]
  - Cystitis [Unknown]
  - Crystal urine present [Recovered/Resolved]

NARRATIVE: CASE EVENT DATE: 20180120
